FAERS Safety Report 8170065-2 (Version None)
Quarter: 2012Q1

REPORT INFORMATION
  Report Type: 
  Country: None (occurrence: None)
  Receive Date: 20120106
  Receipt Date: 20101230
  Transmission Date: 20120608
  Serious: Yes (Other)
  Sender: FDA-Public Use
  Company Number: 20100589

PATIENT
  Age: 82 Year
  Sex: Male
  Weight: 83.9154 kg

DRUGS (11)
  1. MULTI-VITAMINS [Concomitant]
  2. RENVELA [Concomitant]
  3. FELODIPINE [Concomitant]
  4. LISINOPRIL [Concomitant]
  5. TRAMADOL HYDROCHLORID [Concomitant]
  6. PLAVIX [Concomitant]
  7. VENOFER [Suspect]
     Indication: ANAEMIA
     Dosage: 200 MG INTRAVENOUS
     Route: 042
     Dates: start: 20101029, end: 20101029
  8. SODIUM BICARBONATE [Concomitant]
  9. SIMVASTATIN [Concomitant]
  10. GEMFIBROZIL [Concomitant]
  11. ASPIRIN [Concomitant]

REACTIONS (2)
  - LOCALISED OEDEMA [None]
  - SWOLLEN TONGUE [None]
